FAERS Safety Report 10405073 (Version 2)
Quarter: 2014Q3

REPORT INFORMATION
  Report Type: Spontaneous
  Country: DE (occurrence: DE)
  Receive Date: 20140825
  Receipt Date: 20140903
  Transmission Date: 20150326
  Serious: Yes (Death, Life-Threatening, Hospitalization, Other)
  Sender: FDA-Public Use
  Company Number: DE-BRISTOL-MYERS SQUIBB COMPANY-21324587

PATIENT
  Age: 75 Year
  Sex: Female
  Weight: 65 kg

DRUGS (1)
  1. ELIQUIS [Suspect]
     Active Substance: APIXABAN
     Indication: CEREBROVASCULAR ACCIDENT PROPHYLAXIS
     Route: 048
     Dates: start: 201312

REACTIONS (5)
  - Cerebral haemorrhage [Unknown]
  - Renal failure acute [Unknown]
  - Pneumonia aspiration [Unknown]
  - Thalamus haemorrhage [Fatal]
  - Urosepsis [Unknown]

NARRATIVE: CASE EVENT DATE: 201407
